FAERS Safety Report 9276553 (Version 6)
Quarter: 2014Q4

REPORT INFORMATION
  Report Type: Report from Study
  Country: NL (occurrence: NL)
  Receive Date: 20130507
  Receipt Date: 20141003
  Transmission Date: 20150529
  Serious: Yes (Hospitalization, Other)
  Sender: FDA-Public Use
  Company Number: NL-JNJFOC-20130416568

PATIENT
  Age: 50 Year
  Sex: Male
  Weight: 86 kg

DRUGS (2)
  1. USTEKINUMAB [Suspect]
     Active Substance: USTEKINUMAB
     Indication: PSORIASIS
     Route: 058
     Dates: start: 20090406, end: 20120723
  2. USTEKINUMAB [Suspect]
     Active Substance: USTEKINUMAB
     Indication: PSORIASIS
     Route: 058
     Dates: start: 20090406, end: 20120723

REACTIONS (1)
  - Diffuse large B-cell lymphoma recurrent [Recovered/Resolved]

NARRATIVE: CASE EVENT DATE: 20130416
